FAERS Safety Report 5477868-3 (Version None)
Quarter: 2007Q4

REPORT INFORMATION
  Report Type: 
  Country: None (occurrence: None)
  Receive Date: 20071004
  Receipt Date: 20071002
  Transmission Date: 20080405
  Serious: Yes (Other)
  Sender: FDA-Public Use
  Company Number: US-BOEHRINGER INGELHEIM PHARMACEUTICALS, INC.-2007-BP-22007BP

PATIENT
  Age: 82 Year
  Sex: Female

DRUGS (10)
  1. SPIRIVA [Suspect]
     Indication: CHRONIC OBSTRUCTIVE PULMONARY DISEASE
     Route: 055
     Dates: start: 20041101
  2. LASIX [Concomitant]
  3. ISOSORBIDE DINITRATE [Concomitant]
  4. HYDRALAZINE HCL [Concomitant]
     Indication: HYPERTENSION
  5. COREG [Concomitant]
     Indication: HYPERTENSION
  6. ASA-BABY [Concomitant]
  7. NEXIUM [Concomitant]
     Indication: HIATUS HERNIA
  8. ZOLOFT [Concomitant]
  9. LIPITOR [Concomitant]
  10. CHEMOTHERAPY [Concomitant]
     Dates: start: 20060901, end: 20070201

REACTIONS (3)
  - CHEST DISCOMFORT [None]
  - DYSPNOEA [None]
  - NON-HODGKIN'S LYMPHOMA [None]
